FAERS Safety Report 10234109 (Version 2)
Quarter: 2014Q2

REPORT INFORMATION
  Report Type: Other
  Country: US (occurrence: US)
  Receive Date: 20140612
  Receipt Date: 20140612
  Transmission Date: 20141212
  Serious: Yes (Hospitalization, Other)
  Sender: FDA-Public Use
  Company Number: US-GSKPPD-2014GSK001508

PATIENT
  Age: 100 Year
  Sex: Male

DRUGS (4)
  1. AVANDIA [Suspect]
     Indication: DIABETES MELLITUS
     Route: 048
     Dates: start: 2001, end: 2007
  2. ASPIRIN [Concomitant]
  3. METOLAZONE [Concomitant]
  4. HYDRALAZINE [Concomitant]

REACTIONS (5)
  - Cardiac failure congestive [Recovered/Resolved]
  - Aortic stenosis [Recovered/Resolved]
  - Aortic valve disease [Recovered/Resolved]
  - Renal failure acute [Recovered/Resolved]
  - Coronary artery disease [Recovered/Resolved]
